FAERS Safety Report 5081799-0 (Version None)
Quarter: 2006Q3

REPORT INFORMATION
  Report Type: 
  Country: None (occurrence: None)
  Receive Date: 20060816
  Receipt Date: 20060721
  Transmission Date: 20061208
  Serious: Yes (Hospitalization)
  Sender: FDA-Public Use
  Company Number: J200602435

PATIENT
  Age: 7 Year
  Sex: Male

DRUGS (2)
  1. SAWACILLIN [Suspect]
     Dosage: 500MG PER DAY
     Route: 048
     Dates: start: 20060610, end: 20060710
  2. NAPROXEN [Suspect]
     Dosage: 50MG AS REQUIRED
     Route: 048
     Dates: start: 20060704, end: 20060711

REACTIONS (1)
  - PYREXIA [None]
